FAERS Safety Report 4365050-2 (Version None)
Quarter: 2004Q2

REPORT INFORMATION
  Report Type: 
  Country: None (occurrence: None)
  Receive Date: 20040521
  Receipt Date: 20040510
  Transmission Date: 20050107
  Serious: Yes (Life-Threatening, Hospitalization, Disabling)
  Sender: FDA-Public Use
  Company Number: A03200400022

PATIENT
  Age: 50 Year
  Sex: Female
  Weight: 79.3795 kg

DRUGS (9)
  1. ARALEN - CHLOROQUINE PHOSPHATE - TABLET - UNIT DOSE : UNKNOWN [Suspect]
     Indication: RHEUMATOID ARTHRITIS
     Dosage: 500 MG QD - ORAL
     Route: 048
     Dates: end: 20011201
  2. METHOTREXATE [Concomitant]
  3. LEVOTHYROXINE SODIUM [Concomitant]
  4. FOLIC ACID [Concomitant]
  5. CONJUGATED ESTROGENS/MEDROXYPROGESTERONE [Concomitant]
  6. PANTOPRAZOLE SODIUM [Concomitant]
  7. FUROSEMIDE [Concomitant]
  8. POTASSIUM CHLORIDE [Concomitant]
  9. LISINOPRIL [Concomitant]

REACTIONS (47)
  - ASCITES [None]
  - ASTHENIA [None]
  - ATHEROSCLEROSIS [None]
  - BACK PAIN [None]
  - BIOPSY HEART ABNORMAL [None]
  - CARDIAC ARREST [None]
  - CARDIAC FAILURE [None]
  - CARDIAC FAILURE CONGESTIVE [None]
  - CARDIAC MURMUR [None]
  - CARDIO-RESPIRATORY ARREST [None]
  - CARDIOMEGALY [None]
  - CARDIOMYOPATHY [None]
  - CATHETER SITE INFECTION [None]
  - CLOSTRIDIUM COLITIS [None]
  - CONDITION AGGRAVATED [None]
  - CORONARY ARTERY ATHEROSCLEROSIS [None]
  - CYTOMEGALOVIRUS INFECTION [None]
  - DEPRESSION [None]
  - DYSPNOEA EXERTIONAL [None]
  - FACIAL WASTING [None]
  - HEART TRANSPLANT [None]
  - HEPATOMEGALY [None]
  - HISTOLOGY ABNORMAL [None]
  - HYPOTHYROIDISM [None]
  - INTRACARDIAC THROMBUS [None]
  - LENTICULAR OPACITIES [None]
  - LEUKOPENIA [None]
  - LOBAR PNEUMONIA [None]
  - NAUSEA [None]
  - OEDEMA PERIPHERAL [None]
  - PERICARDIAL DISEASE [None]
  - POST PROCEDURAL COMPLICATION [None]
  - RENAL FAILURE [None]
  - RESTRICTIVE CARDIOMYOPATHY [None]
  - RETINITIS PIGMENTOSA [None]
  - SCAR [None]
  - STOMACH DISCOMFORT [None]
  - TRANSIENT ISCHAEMIC ATTACK [None]
  - TRICUSPID VALVE INCOMPETENCE [None]
  - VENTRICULAR FIBRILLATION [None]
  - VENTRICULAR HYPERTROPHY [None]
  - VISUAL ACUITY REDUCED [None]
  - VISUAL FIELD DEFECT [None]
  - VOCAL CORD PARESIS [None]
  - VOMITING [None]
  - WEIGHT DECREASED [None]
  - WOUND INFECTION [None]
